FAERS Safety Report 5741752-8 (Version None)
Quarter: 2008Q2

REPORT INFORMATION
  Report Type: 
  Country: None (occurrence: None)
  Receive Date: 20080519
  Receipt Date: 20070305
  Transmission Date: 20081010
  Serious: No
  Sender: FDA-Public Use
  Company Number: US-BAYER-US-2007-007850

PATIENT
  Age: 35 Year
  Sex: Female
  Weight: 77 kg

DRUGS (3)
  1. ULTRAVIST 300 [Suspect]
     Indication: COMPUTERISED TOMOGRAM ABDOMEN
     Dosage: UNIT DOSE: 120 ML
     Route: 042
     Dates: start: 20070305, end: 20070305
  2. ZOLOFT [Concomitant]
     Route: 065
  3. ZYPREXA [Concomitant]
     Route: 065

REACTIONS (3)
  - ERYTHEMA [None]
  - HOT FLUSH [None]
  - NAUSEA [None]
